FAERS Safety Report 6716525-X (Version None)
Quarter: 2010Q2

REPORT INFORMATION
  Report Type: 
  Country: None (occurrence: None)
  Receive Date: 20100507
  Receipt Date: 20100426
  Transmission Date: 20101027
  Serious: Yes (Hospitalization, Other)
  Sender: FDA-Public Use
  Company Number: US-WYE-H13306910

PATIENT
  Sex: Female
  Weight: 108.96 kg

DRUGS (4)
  1. PRISTIQ [Suspect]
     Indication: DEPRESSION
     Route: 048
     Dates: start: 20090924, end: 20100101
  2. ETHANOL [Suspect]
     Dosage: UNKNOWN
  3. TRAZODONE HCL [Suspect]
     Indication: INSOMNIA
     Dosage: UNKNOWN
     Dates: start: 20090801, end: 20090101
  4. TRAZODONE HCL [Suspect]
     Dates: start: 20090101, end: 20100101

REACTIONS (14)
  - AFFECTIVE DISORDER [None]
  - AGGRESSION [None]
  - AGITATION [None]
  - ANGER [None]
  - ANXIETY [None]
  - DRY MOUTH [None]
  - FEELING ABNORMAL [None]
  - HOMICIDAL IDEATION [None]
  - IMPULSE-CONTROL DISORDER [None]
  - IRRITABILITY [None]
  - PERSONALITY CHANGE [None]
  - POOR QUALITY SLEEP [None]
  - STRESS [None]
  - WEIGHT INCREASED [None]
